FAERS Safety Report 4961526-5 (Version None)
Quarter: 2006Q1

REPORT INFORMATION
  Report Type: 
  Country: None (occurrence: None)
  Receive Date: 20060201
  Receipt Date: 20051107
  Transmission Date: 20060701
  Serious: No
  Sender: FDA-Public Use
  Company Number: 2005PV003927

PATIENT
  Age: 41 Year
  Sex: Female

DRUGS (7)
  1. BYETTA [Suspect]
     Indication: DIABETES MELLITUS NON-INSULIN-DEPENDENT
     Dosage: 5 MCG; BID; SC
     Route: 058
     Dates: start: 20051105, end: 20051107
  2. AVANDAMET [Concomitant]
  3. METFORMIN [Concomitant]
  4. NEXIUM [Concomitant]
  5. NORFLEX [Concomitant]
  6. TRIAVALON [Concomitant]
  7. STEROID INJECTION [Concomitant]

REACTIONS (3)
  - CHEST PAIN [None]
  - ELECTROCARDIOGRAM T WAVE AMPLITUDE DECREASED [None]
  - HEADACHE [None]
